FAERS Safety Report 25030150 (Version 1)
Quarter: 2025Q1

REPORT INFORMATION
  Report Type: Report from Study
  Country: PK (occurrence: PK)
  Receive Date: 20250303
  Receipt Date: 20250303
  Transmission Date: 20250408
  Serious: Yes (Death)
  Sender: ROCHE
  Company Number: PK-ROCHE-10000220016

PATIENT
  Age: 64 Year
  Sex: Male

DRUGS (2)
  1. AVASTIN [Suspect]
     Active Substance: BEVACIZUMAB
     Indication: Non-small cell lung cancer
     Route: 042
     Dates: start: 20240702
  2. TECENTRIQ [Suspect]
     Active Substance: ATEZOLIZUMAB
     Indication: Non-small cell lung cancer
     Route: 042
     Dates: start: 20240702

REACTIONS (3)
  - Non-small cell lung cancer [Fatal]
  - Lung disorder [Fatal]
  - Dyspnoea [Fatal]

NARRATIVE: CASE EVENT DATE: 20250124
